FAERS Safety Report 20666261 (Version 2)
Quarter: 2022Q2

REPORT INFORMATION
  Report Type: Spontaneous
  Country: US (occurrence: US)
  Receive Date: 20220403
  Receipt Date: 20220516
  Transmission Date: 20220721
  Serious: Yes (Disabling)
  Sender: FDA-Public Use
  Company Number: US-SA-SAC20220331001085

PATIENT
  Sex: Male

DRUGS (3)
  1. DUPIXENT [Suspect]
     Active Substance: DUPILUMAB
     Dosage: 300 MG
     Route: 058
  2. KENALOG [Concomitant]
     Active Substance: TRIAMCINOLONE ACETONIDE
     Route: 030
  3. RINVOQ [Concomitant]
     Active Substance: UPADACITINIB

REACTIONS (5)
  - Loss of personal independence in daily activities [Unknown]
  - Pain [Unknown]
  - Pruritus [Unknown]
  - Rash [Unknown]
  - Sleep disorder [Unknown]
